FAERS Safety Report 4307505-2 (Version None)
Quarter: 2004Q1

REPORT INFORMATION
  Report Type: 
  Country: None (occurrence: None)
  Receive Date: 20040226
  Receipt Date: 20040219
  Transmission Date: 20041129
  Serious: Yes (Life-Threatening, Hospitalization)
  Sender: FDA-Public Use
  Company Number: 2004200063IT

PATIENT
  Age: 94 Year
  Sex: Female

DRUGS (1)
  1. FRAGMIN [Suspect]
     Indication: DRUG USE FOR UNKNOWN INDICATION
     Dosage: 5000 IU, QD, SUBCUTANEOUS
     Route: 058
     Dates: start: 20040205, end: 20040216

REACTIONS (1)
  - DEEP VEIN THROMBOSIS [None]
